FAERS Safety Report 25823538 (Version 1)
Quarter: 2025Q3

REPORT INFORMATION
  Report Type: Spontaneous
  Country: US (occurrence: US)
  Receive Date: 20250919
  Receipt Date: 20250919
  Transmission Date: 20251020
  Serious: Yes (Hospitalization)
  Sender: SANOFI AVENTIS
  Company Number: US-SA-2025SA275085

PATIENT
  Age: 73 Year
  Sex: Male

DRUGS (7)
  1. DUPIXENT [Suspect]
     Active Substance: DUPILUMAB
     Indication: Pemphigoid
     Dosage: 300 MG, QOW
     Route: 058
  2. BACLOFEN [Concomitant]
     Active Substance: BACLOFEN
  3. DOXYCYCLINE [Concomitant]
     Active Substance: DOXYCYCLINE
  4. EZETIMIBE [Concomitant]
     Active Substance: EZETIMIBE
  5. PREDNISONE [Concomitant]
     Active Substance: PREDNISONE
  6. ROSUVASTATIN [Concomitant]
     Active Substance: ROSUVASTATIN
  7. VALSARTAN [Concomitant]
     Active Substance: VALSARTAN

REACTIONS (3)
  - Peripheral swelling [Not Recovered/Not Resolved]
  - Mouth ulceration [Not Recovered/Not Resolved]
  - Pruritus [Not Recovered/Not Resolved]

NARRATIVE: CASE EVENT DATE: 20250801
